FAERS Safety Report 5442346-4 (Version None)
Quarter: 2007Q3

REPORT INFORMATION
  Report Type: 
  Country: None (occurrence: None)
  Receive Date: 20070904
  Receipt Date: 20070824
  Transmission Date: 20080115
  Serious: Yes (Hospitalization)
  Sender: FDA-Public Use
  Company Number: DE-PFIZER INC-2006136623

PATIENT
  Sex: Male

DRUGS (28)
  1. SU-011,248 [Suspect]
     Indication: METASTATIC RENAL CELL CARCINOMA
     Dosage: DAILY DOSE:37.5MG
     Route: 048
     Dates: start: 20060202, end: 20061015
  2. HYDROCORTISON [Concomitant]
  3. PANTOPRAZOL [Concomitant]
  4. FLUDROCORTISONE ACETATE [Concomitant]
     Dates: start: 20050101
  5. THEOPHYLLINE [Concomitant]
     Dates: start: 20050101
  6. VALSARTAN [Concomitant]
     Dates: start: 20050101, end: 20060620
  7. VALSARTAN [Concomitant]
     Dates: start: 20061012
  8. AMLODIPINE BESYLATE [Concomitant]
     Dates: start: 20050101, end: 20060620
  9. MOLSIDOMINE [Concomitant]
  10. METOPROLOL SUCCINATE [Concomitant]
     Dates: start: 20050101
  11. INSULIN ASPART [Concomitant]
     Dates: start: 20030101
  12. INSULIN HUMAN [Concomitant]
     Dates: start: 20030101
  13. SIMETICONE [Concomitant]
     Dates: start: 20060313
  14. FUROSEMIDE [Concomitant]
     Dates: start: 20060327
  15. CEFUROXIME AXETIL [Concomitant]
     Dates: start: 20060428, end: 20060510
  16. NOVALGIN [Concomitant]
     Dates: start: 20051001
  17. CALCIUM-SANDOZ FORTE [Concomitant]
  18. RESONIUM [Concomitant]
     Dates: start: 20060620
  19. EPOETIN BETA [Concomitant]
  20. ALFACALCIDOL [Concomitant]
     Dates: start: 20060427
  21. DIOVAN HCT [Concomitant]
     Dosage: TEXT:160 MG + 25 MG
     Dates: start: 20060427, end: 20061012
  22. LOPERAMIDE HYDROCHLORIDE [Concomitant]
     Dates: start: 20060529
  23. UREA [Concomitant]
     Dates: start: 20060911, end: 20061105
  24. SPIRONOLACTONE [Concomitant]
     Dates: start: 20060321, end: 20060620
  25. ACETYLCYSTEINE [Concomitant]
     Dates: start: 20060227, end: 20060227
  26. FERROUS SUCCINATE [Concomitant]
     Dates: start: 20061019, end: 20061028
  27. FOLIC ACID [Concomitant]
  28. SODIUM CHLORIDE [Concomitant]
     Dosage: TEXT:0.9 %
     Dates: start: 20060227, end: 20060227

REACTIONS (3)
  - DEHYDRATION [None]
  - DIARRHOEA [None]
  - RENAL FAILURE ACUTE [None]
